FAERS Safety Report 21030008 (Version 1)
Quarter: 2022Q3

REPORT INFORMATION
  Report Type: Spontaneous
  Country: US (occurrence: None)
  Receive Date: 20220701
  Receipt Date: 20220701
  Transmission Date: 20221027
  Serious: No
  Sender: FDA-Public Use
  Company Number: US-ROCHE-2907958

PATIENT
  Sex: Female
  Weight: 70.370 kg

DRUGS (8)
  1. ACTEMRA [Suspect]
     Active Substance: TOCILIZUMAB
     Indication: Polychondritis
     Dosage: STRENGTH 162MG/0.9ML
     Route: 058
  2. ACTEMRA [Suspect]
     Active Substance: TOCILIZUMAB
  3. ACTEMRA [Suspect]
     Active Substance: TOCILIZUMAB
  4. CYANOCOBALAMIN [Concomitant]
     Active Substance: CYANOCOBALAMIN
     Route: 042
     Dates: start: 20191014, end: 20210601
  5. ESTROPIPATE [Concomitant]
     Active Substance: ESTROPIPATE
     Route: 048
     Dates: start: 20191014
  6. MORPHINE SULFATE [Concomitant]
     Active Substance: MORPHINE SULFATE
     Route: 048
     Dates: start: 20191014, end: 20210601
  7. MS CONTIN [Concomitant]
     Active Substance: MORPHINE SULFATE
     Route: 048
     Dates: start: 20191014, end: 20210601
  8. VITAMINS [Concomitant]
     Active Substance: VITAMINS
     Route: 048
     Dates: start: 20191014

REACTIONS (2)
  - Off label use [Unknown]
  - No adverse event [Unknown]
